FAERS Safety Report 14423990 (Version 2)
Quarter: 2018Q1

REPORT INFORMATION
  Report Type: Report from Study
  Country: JP (occurrence: JP)
  Receive Date: 20180123
  Receipt Date: 20180129
  Transmission Date: 20180509
  Serious: Yes (Death)
  Sender: FDA-Public Use
  Company Number: JP-EMD SERONO-E2B_90016564

PATIENT
  Age: 46 Year
  Sex: Female
  Weight: 39 kg

DRUGS (11)
  1. OLMETEC [Concomitant]
     Active Substance: OLMESARTAN MEDOXOMIL
     Indication: HYPERTENSION
     Dosage: 20 MG, UNK
     Route: 048
     Dates: start: 20160510
  2. LANSOPRAZOLE. [Concomitant]
     Active Substance: LANSOPRAZOLE
     Indication: CHRONIC GASTRITIS
     Dosage: 15 MG, UNK
     Route: 048
     Dates: start: 20160518
  3. ZOLPIDEM TARTRATE. [Concomitant]
     Active Substance: ZOLPIDEM TARTRATE
     Indication: INSOMNIA
     Dosage: 10 MG, UNK
     Route: 048
     Dates: start: 20160417
  4. MAGMITT [Concomitant]
     Active Substance: MAGNESIUM OXIDE
     Indication: CONSTIPATION
     Dosage: 330 MG, UNK
     Route: 048
     Dates: start: 20160410
  5. AVELUMAB [Suspect]
     Active Substance: AVELUMAB
     Indication: OVARIAN CANCER
     Dosage: UNK
     Dates: start: 20161213, end: 20170209
  6. LOXOPROFEN/LOXOPROFEN SODIUM HYDRATE [Concomitant]
     Indication: BACK PAIN
     Dosage: 60 MG, 2X/DAY
     Route: 048
     Dates: start: 20160406
  7. CALONAL [Concomitant]
     Active Substance: ACETAMINOPHEN
     Indication: BACK PAIN
     Dosage: 400 MG, 2X/DAY
     Route: 048
     Dates: start: 20160914
  8. CALONAL [Concomitant]
     Active Substance: ACETAMINOPHEN
     Indication: ANTIPYRESIS
  9. DOXORUBICIN [Suspect]
     Active Substance: DOXORUBICIN
     Indication: OVARIAN CANCER
     Dosage: UNK
     Dates: start: 20161213, end: 20170209
  10. DENOTAS [Concomitant]
     Active Substance: CALCIUM CARBONATE\CHOLECALCIFEROL\MAGNESIUM CARBONATE
     Indication: HYPOCALCAEMIA
     Dosage: 2 DF, UNK
     Route: 048
     Dates: start: 20161115
  11. ADOFEED [Concomitant]
     Active Substance: FLURBIPROFEN
     Indication: BACK PAIN
     Dosage: 40 MG, AS NEEDED
     Route: 062
     Dates: start: 20160529

REACTIONS (1)
  - Neoplasm progression [Fatal]

NARRATIVE: CASE EVENT DATE: 20170302
